FAERS Safety Report 14926762 (Version 1)
Quarter: 2018Q2

REPORT INFORMATION
  Report Type: Report from Study
  Country: RU (occurrence: RU)
  Receive Date: 20180523
  Receipt Date: 20180523
  Transmission Date: 20180711
  Serious: Yes (Other)
  Sender: FDA-Public Use
  Company Number: RU-ASTRAZENECA-2018SE67482

PATIENT
  Age: 65 Year
  Sex: Female
  Weight: 90 kg

DRUGS (5)
  1. INDAPAMIDE. [Concomitant]
     Active Substance: INDAPAMIDE
  2. FORXIGA [Suspect]
     Active Substance: DAPAGLIFLOZIN
     Indication: TYPE 2 DIABETES MELLITUS
     Route: 048
  3. ATORIS [Concomitant]
     Active Substance: ATORVASTATIN CALCIUM
  4. DILTIAZEM. [Concomitant]
     Active Substance: DILTIAZEM
  5. BETASERC [Concomitant]
     Active Substance: BETAHISTINE

REACTIONS (1)
  - Blood pressure increased [Not Recovered/Not Resolved]
